FAERS Safety Report 23996387 (Version 1)
Quarter: 2024Q2

REPORT INFORMATION
  Report Type: Spontaneous
  Country: US (occurrence: US)
  Receive Date: 20240620
  Receipt Date: 20240620
  Transmission Date: 20240715
  Serious: Yes (Hospitalization)
  Sender: FDA-Public Use
  Company Number: US-002147023-NVSC2024US124619

PATIENT
  Age: 79 Year
  Sex: Female

DRUGS (10)
  1. ENTRESTO [Suspect]
     Active Substance: SACUBITRIL\VALSARTAN
     Indication: Heart failure with preserved ejection fraction
     Dosage: UNK (49-51 MG)
     Route: 065
     Dates: start: 20240222
  2. CARVEDILOL [Suspect]
     Active Substance: CARVEDILOL
     Indication: Heart failure with preserved ejection fraction
     Dosage: UNK UNK, Q12H (DAILY DOSE-3.125)
     Route: 048
     Dates: start: 20210621
  3. AMLODIPINE [Suspect]
     Active Substance: AMLODIPINE BESYLATE
     Indication: Hypertension
     Dosage: 5 MG
     Route: 048
     Dates: start: 20231127
  4. JARDIANCE [Suspect]
     Active Substance: EMPAGLIFLOZIN
     Indication: Cardiac failure
     Dosage: 10 MG
     Route: 048
     Dates: start: 20231108, end: 20240329
  5. JARDIANCE [Suspect]
     Active Substance: EMPAGLIFLOZIN
     Dosage: 10 MG
     Route: 048
     Dates: start: 20240409, end: 20240413
  6. WARFARIN [Concomitant]
     Active Substance: WARFARIN
     Indication: Atrial fibrillation
     Dosage: 2.5 MG
     Route: 048
     Dates: start: 2018
  7. ASPIRIN [Concomitant]
     Active Substance: ASPIRIN
     Indication: Coronary artery disease
     Dosage: 81 MG
     Route: 048
     Dates: start: 2018
  8. EVOLOCUMAB [Concomitant]
     Active Substance: EVOLOCUMAB
     Indication: Hypercholesterolaemia
     Dosage: 10 MG, Q2W (140 MILLIGRAMS)
     Route: 058
     Dates: start: 20210812
  9. SPIRONOLACTONE [Concomitant]
     Active Substance: SPIRONOLACTONE
     Indication: Heart failure with preserved ejection fraction
     Dosage: 12.5 MG
     Route: 048
  10. TORSEMIDE [Concomitant]
     Active Substance: TORSEMIDE
     Indication: Heart failure with preserved ejection fraction
     Dosage: 20 MG
     Route: 048
     Dates: start: 20230915

REACTIONS (2)
  - Hypotension [Not Recovered/Not Resolved]
  - Dyspnoea [Not Recovered/Not Resolved]

NARRATIVE: CASE EVENT DATE: 20240321
